FAERS Safety Report 8486566-3 (Version None)
Quarter: 2012Q3

REPORT INFORMATION
  Report Type: 
  Country: None (occurrence: None)
  Receive Date: 20120703
  Receipt Date: 20120629
  Transmission Date: 20120928
  Serious: Yes (Death, Life-Threatening, Hospitalization, Other)
  Sender: FDA-Public Use
  Company Number: LB-ABBOTT-12P-093-0942906-00

PATIENT
  Sex: Male
  Weight: 72 kg

DRUGS (5)
  1. METHOTREXATE [Concomitant]
     Indication: PSORIASIS
     Route: 065
     Dates: start: 20100101, end: 20120425
  2. HUMIRA [Suspect]
     Indication: PSORIASIS
     Route: 065
     Dates: end: 20120323
  3. CAPOTEN [Concomitant]
     Indication: PRODUCT USED FOR UNKNOWN INDICATION
  4. VENTOLIN [Concomitant]
  5. DITROPAN [Concomitant]
     Indication: PRODUCT USED FOR UNKNOWN INDICATION

REACTIONS (6)
  - GUILLAIN-BARRE SYNDROME [None]
  - HAEMORRHAGE [None]
  - HERPES ZOSTER [None]
  - PARALYSIS [None]
  - CARDIAC ARREST [None]
  - COLITIS ULCERATIVE [None]
